FAERS Safety Report 8522718-1 (Version None)
Quarter: 2012Q3

REPORT INFORMATION
  Report Type: 
  Country: None (occurrence: None)
  Receive Date: 20120719
  Receipt Date: 20120618
  Transmission Date: 20120928
  Serious: Yes (Hospitalization)
  Sender: FDA-Public Use
  Company Number: JP-GLAXOSMITHKLINE-B0809887A

PATIENT
  Sex: Female

DRUGS (3)
  1. ZYPREXA [Concomitant]
     Indication: SCHIZOPHRENIA
     Route: 048
  2. LAMICTAL [Suspect]
     Indication: BIPOLAR DISORDER
     Route: 048
  3. RISPERDAL [Concomitant]
     Indication: SCHIZOPHRENIA
     Route: 065

REACTIONS (7)
  - NEUTROPHIL COUNT DECREASED [None]
  - MENTAL IMPAIRMENT [None]
  - ENCEPHALITIS [None]
  - RASH [None]
  - QUADRIPLEGIA [None]
  - TREMOR [None]
  - PYREXIA [None]
